FAERS Safety Report 7302784-1 (Version None)
Quarter: 2011Q1

REPORT INFORMATION
  Report Type: 
  Country: None (occurrence: None)
  Receive Date: 20110218
  Receipt Date: 20110210
  Transmission Date: 20110831
  Serious: Yes (Hospitalization)
  Sender: FDA-Public Use
  Company Number: US-WATSON-2011-01802

PATIENT
  Age: 31 Year

DRUGS (1)
  1. METRONIDAZOLE [Suspect]
     Indication: CROHN'S DISEASE
     Dosage: 1000 MG, DAILY
     Route: 065

REACTIONS (5)
  - SOMNOLENCE [None]
  - HYPOKINESIA [None]
  - NUCLEAR MAGNETIC RESONANCE IMAGING BRAIN ABNORMAL [None]
  - ALTERED STATE OF CONSCIOUSNESS [None]
  - ENCEPHALOPATHY [None]
